FAERS Safety Report 5682355-3 (Version None)
Quarter: 2008Q1

REPORT INFORMATION
  Report Type: 
  Country: None (occurrence: None)
  Receive Date: 20080327
  Receipt Date: 20080324
  Transmission Date: 20080703
  Serious: Yes (Disabling)
  Sender: FDA-Public Use
  Company Number: US-ASTRAZENECA-2008UW05917

PATIENT
  Sex: Female

DRUGS (1)
  1. SYMBICORT [Suspect]
     Dosage: 160 TWO INHALATIONS
     Route: 055

REACTIONS (3)
  - DIZZINESS [None]
  - FLUSHING [None]
  - HEART RATE INCREASED [None]
